FAERS Safety Report 8602197-6 (Version None)
Quarter: 2012Q3

REPORT INFORMATION
  Report Type: 
  Country: None (occurrence: None)
  Receive Date: 20120817
  Receipt Date: 20120815
  Transmission Date: 20120928
  Serious: Yes (Hospitalization, Other)
  Sender: FDA-Public Use
  Company Number: US-PFIZER INC-2012127220

PATIENT
  Age: 67 Year
  Sex: Female
  Weight: 68 kg

DRUGS (6)
  1. PANTOPRAZOLE [Concomitant]
     Dosage: 40 MG, UNK
  2. CELEBREX [Suspect]
     Indication: ARTHRITIS
     Dosage: 200 MG, (3 TIMES PER WK)
  3. LORTAB [Concomitant]
     Dosage: 500 MG, UNK
  4. CELEBREX [Suspect]
     Indication: OSTEOARTHRITIS
     Dosage: 200 MG, DAILY
     Dates: end: 20110101
  5. ASPIRIN [Suspect]
     Dosage: UNK
  6. PLAVIX [Suspect]
     Indication: ARTHRITIS
     Dosage: 75 MG, UNK

REACTIONS (4)
  - ULCER HAEMORRHAGE [None]
  - STRESS [None]
  - ANAEMIA [None]
  - MENTAL IMPAIRMENT [None]
